FAERS Safety Report 6559556-5 (Version None)
Quarter: 2010Q1

REPORT INFORMATION
  Report Type: 
  Country: None (occurrence: None)
  Receive Date: 20100129
  Receipt Date: 20090902
  Transmission Date: 20100710
  Serious: No
  Sender: FDA-Public Use
  Company Number: US-ABBOTT-09P-163-0595400-00

PATIENT
  Sex: Female
  Weight: 67.192 kg

DRUGS (2)
  1. HUMIRA [Suspect]
     Indication: CROHN'S DISEASE
     Route: 058
     Dates: start: 20090101
  2. XANAX [Concomitant]
     Indication: NERVOUSNESS
     Route: 048

REACTIONS (7)
  - ALOPECIA [None]
  - BACK PAIN [None]
  - DIZZINESS [None]
  - NERVOUSNESS [None]
  - RHINORRHOEA [None]
  - SINUSITIS [None]
  - URINARY TRACT INFECTION [None]
